FAERS Safety Report 24684220 (Version 2)
Quarter: 2025Q3

REPORT INFORMATION
  Report Type: Report from Study
  Country: CA (occurrence: CA)
  Receive Date: 20241202
  Receipt Date: 20250903
  Transmission Date: 20251021
  Serious: Yes (Hospitalization, Other)
  Sender: TAKEDA
  Company Number: CA-TAKEDA-2023TUS088806

PATIENT
  Age: 78 Year
  Sex: Male

DRUGS (7)
  1. VEDOLIZUMAB [Suspect]
     Active Substance: VEDOLIZUMAB
     Indication: Colitis ulcerative
  2. VEDOLIZUMAB [Suspect]
     Active Substance: VEDOLIZUMAB
  3. VEDOLIZUMAB [Suspect]
     Active Substance: VEDOLIZUMAB
  4. VEDOLIZUMAB [Suspect]
     Active Substance: VEDOLIZUMAB
  5. IRON [Concomitant]
     Active Substance: IRON
  6. Salofalk [Concomitant]
  7. MESALAMINE [Concomitant]
     Active Substance: MESALAMINE

REACTIONS (7)
  - Urinary retention [Recovering/Resolving]
  - Angina pectoris [Recovering/Resolving]
  - Gastrointestinal motility disorder [Recovering/Resolving]
  - Post procedural constipation [Recovering/Resolving]
  - Large intestine polyp [Recovered/Resolved]
  - Diarrhoea [Not Recovered/Not Resolved]
  - Mucous stools [Unknown]

NARRATIVE: CASE EVENT DATE: 20230907
